FAERS Safety Report 13869847 (Version 1)
Quarter: 2017Q3

REPORT INFORMATION
  Report Type: Spontaneous
  Country: US (occurrence: US)
  Receive Date: 20170815
  Receipt Date: 20170815
  Transmission Date: 20171127
  Serious: Yes (Other)
  Sender: FDA-Public Use
  Company Number: US-APOPHARMA USA, INC.-2017AP016544

PATIENT

DRUGS (19)
  1. ALKERAN [Suspect]
     Active Substance: MELPHALAN
     Indication: SURGICAL PRECONDITIONING
     Dosage: 70 MG/M2, QD
     Route: 042
  2. URSODIOL. [Concomitant]
     Active Substance: URSODIOL
     Indication: PROPHYLAXIS
     Dosage: UNK, UNKNOWN
     Route: 048
  3. GM-CSF [Concomitant]
     Active Substance: GRANULOCYTE-MACROPHAGE COLONY-STIMULATING FACTOR
     Indication: NEUROBLASTOMA
     Dosage: 250 ?G/M2, QD
     Route: 065
  4. PENTAMIDINE [Concomitant]
     Active Substance: PENTAMIDINE
     Indication: ANTIFUNGAL PROPHYLAXIS
     Dosage: UNK, UNKNOWN
     Route: 065
  5. ENOXAPARIN [Concomitant]
     Active Substance: ENOXAPARIN
     Indication: PROPHYLAXIS
     Dosage: UNK, UNKNOWN
     Route: 065
  6. ALKERAN [Suspect]
     Active Substance: MELPHALAN
     Dosage: 2.3 MG/KG, QD
     Route: 042
  7. MICAFUNGIN [Concomitant]
     Active Substance: MICAFUNGIN
     Indication: ANTIFUNGAL PROPHYLAXIS
     Dosage: UNK, UNKNOWN
     Route: 065
  8. LEVETIRACETAM. [Concomitant]
     Active Substance: LEVETIRACETAM
     Indication: PROPHYLAXIS
     Dosage: UNK, UNKNOWN
     Route: 065
  9. LEVOFLOXACIN. [Concomitant]
     Active Substance: LEVOFLOXACIN
     Indication: ANTIBIOTIC PROPHYLAXIS
     Dosage: UNK, UNKNOWN
     Route: 065
  10. ISOTRETINOIN [Concomitant]
     Active Substance: ISOTRETINOIN
     Indication: SUPPORTIVE CARE
     Dosage: UNK, UNKNOWN
     Route: 065
  11. BUSULPHAN [Suspect]
     Active Substance: BUSULFAN
     Indication: SURGICAL PRECONDITIONING
     Dosage: 0.8 MG/KG, Q.6H
     Route: 042
  12. ACYCLOVIR                          /00587301/ [Concomitant]
     Active Substance: ACYCLOVIR
     Indication: ANTIVIRAL PROPHYLAXIS
     Dosage: UNK, UNKNOWN
     Route: 065
  13. TRIMETHOPRIM SULFAMETHOXAZOLE [Concomitant]
     Active Substance: SULFAMETHOXAZOLE\TRIMETHOPRIM
     Indication: ANTIFUNGAL PROPHYLAXIS
     Dosage: UNK, UNKNOWN
     Route: 065
  14. VANCOMYCIN [Concomitant]
     Active Substance: VANCOMYCIN
     Indication: ANTIBIOTIC PROPHYLAXIS
     Dosage: UNK, UNKNOWN
     Route: 065
  15. BUSULPHAN [Suspect]
     Active Substance: BUSULFAN
     Dosage: 1.1 MG/KG, Q.6H
     Route: 042
  16. INTERLEUKIN-2 [Concomitant]
     Active Substance: ALDESLEUKIN
     Indication: NEUROBLASTOMA
     Dosage: 10 UNK, Q.O.D.
     Route: 058
  17. HEPARIN [Concomitant]
     Active Substance: HEPARIN SODIUM
     Indication: PROPHYLAXIS
     Dosage: UNK, UNKNOWN
     Route: 065
  18. FLUCONAZOLE. [Concomitant]
     Active Substance: FLUCONAZOLE
     Indication: ANTIFUNGAL PROPHYLAXIS
     Dosage: UNK, UNKNOWN
     Route: 065
  19. CEFEPIME [Concomitant]
     Active Substance: CEFEPIME HYDROCHLORIDE
     Indication: ANTIBIOTIC PROPHYLAXIS
     Dosage: UNK, UNKNOWN
     Route: 065

REACTIONS (3)
  - Respiratory failure [Unknown]
  - Pneumonia aspiration [Unknown]
  - Venoocclusive disease [Unknown]
